FAERS Safety Report 6801472-5 (Version None)
Quarter: 2010Q2

REPORT INFORMATION
  Report Type: 
  Country: None (occurrence: None)
  Receive Date: 20100629
  Receipt Date: 20100622
  Transmission Date: 20101027
  Serious: Yes (Death)
  Sender: FDA-Public Use
  Company Number: IN-ROCHE-711380

PATIENT
  Age: 1 Year
  Sex: Male

DRUGS (1)
  1. TAMIFLU [Suspect]
     Indication: H1N1 INFLUENZA
     Route: 065

REACTIONS (1)
  - DEATH [None]
